FAERS Safety Report 8217433-8 (Version None)
Quarter: 2012Q1

REPORT INFORMATION
  Report Type: 
  Country: None (occurrence: None)
  Receive Date: 20120314
  Receipt Date: 20120229
  Transmission Date: 20120608
  Serious: Yes (Other)
  Sender: FDA-Public Use
  Company Number: TPA2012A01132

PATIENT
  Age: 77 Year
  Sex: Female

DRUGS (2)
  1. METFORMIN HCL [Concomitant]
  2. ACTOS [Suspect]

REACTIONS (2)
  - BLADDER CANCER [None]
  - LYMPHOMA [None]
